FAERS Safety Report 17205788 (Version 1)
Quarter: 2019Q4

REPORT INFORMATION
  Report Type: Spontaneous
  Country: US (occurrence: US)
  Receive Date: 20191227
  Receipt Date: 20191227
  Transmission Date: 20200122
  Serious: Yes (Life-Threatening, Hospitalization)
  Sender: FDA-Public Use
  Company Number: US-STRIDES ARCOLAB LIMITED-2019SP011188

PATIENT
  Age: 67 Year
  Sex: Female

DRUGS (3)
  1. METHYLPREDNISOLONE ACETATE. [Suspect]
     Active Substance: METHYLPREDNISOLONE ACETATE
     Indication: BURSITIS
     Dosage: UNK
     Route: 030
  2. PREDNISOLONE. [Suspect]
     Active Substance: PREDNISOLONE
     Indication: PRODUCT USED FOR UNKNOWN INDICATION
     Dosage: UNK
     Route: 048
  3. LIDOCAINE. [Suspect]
     Active Substance: LIDOCAINE
     Indication: BURSITIS
     Dosage: UNK
     Route: 030

REACTIONS (8)
  - Off label use [Unknown]
  - Vomiting [Unknown]
  - Anaphylactic reaction [Unknown]
  - Hypotension [Unknown]
  - Diarrhoea [Unknown]
  - Periorbital oedema [Unknown]
  - Condition aggravated [Unknown]
  - Syncope [Unknown]
